FAERS Safety Report 4733156-1 (Version None)
Quarter: 2005Q3

REPORT INFORMATION
  Report Type: 
  Country: None (occurrence: None)
  Receive Date: 20050803
  Receipt Date: 20050713
  Transmission Date: 20060218
  Serious: Yes (Hospitalization)
  Sender: FDA-Public Use
  Company Number: PHBS2005IT10195

PATIENT
  Age: 34 Year
  Sex: Male

DRUGS (4)
  1. LEPONEX [Suspect]
     Indication: SCHIZOPHRENIA, PARANOID TYPE
  2. LEPONEX [Suspect]
     Dosage: 600 MG/D
     Route: 048
     Dates: start: 20050207, end: 20050315
  3. CARBAMAZEPINE [Concomitant]
     Dosage: 1200 MG/D
     Route: 065
  4. CARBAMAZEPINE [Concomitant]
     Route: 065

REACTIONS (2)
  - ELECTROENCEPHALOGRAM ABNORMAL [None]
  - GRAND MAL CONVULSION [None]
